FAERS Safety Report 25356085 (Version 1)
Quarter: 2025Q2

REPORT INFORMATION
  Report Type: Spontaneous
  Country: US (occurrence: US)
  Receive Date: 20250525
  Receipt Date: 20250525
  Transmission Date: 20250716
  Serious: No
  Sender: AMGEN
  Company Number: US-AMGEN-USASP2025097672

PATIENT
  Sex: Female

DRUGS (1)
  1. REPATHA [Suspect]
     Active Substance: EVOLOCUMAB
     Indication: Product used for unknown indication
     Dosage: 140 MILLIGRAM, Q2WK
     Route: 058
     Dates: start: 2024

REACTIONS (12)
  - Back pain [Recovered/Resolved]
  - Blood pressure increased [Unknown]
  - Cough [Unknown]
  - Arthritis [Unknown]
  - Injection site hypoaesthesia [Unknown]
  - Musculoskeletal disorder [Unknown]
  - Rhinorrhoea [Unknown]
  - Peripheral swelling [Unknown]
  - Muscle spasms [Unknown]
  - Glucose tolerance impaired [Unknown]
  - Ill-defined disorder [Unknown]
  - Injection site pain [Unknown]
